FAERS Safety Report 6040488-6 (Version None)
Quarter: 2009Q1

REPORT INFORMATION
  Report Type: 
  Country: None (occurrence: None)
  Receive Date: 20090116
  Receipt Date: 20080319
  Transmission Date: 20090719
  Serious: Yes (Other)
  Sender: FDA-Public Use
  Company Number: US-BRISTOL-MYERS SQUIBB COMPANY-14121172

PATIENT

DRUGS (2)
  1. ABILIFY [Suspect]
  2. TOPIRAMATE [Suspect]

REACTIONS (1)
  - CONVULSION [None]
